FAERS Safety Report 14480203 (Version 2)
Quarter: 2018Q2

REPORT INFORMATION
  Report Type: Spontaneous
  Country: US (occurrence: US)
  Receive Date: 20180202
  Receipt Date: 20180605
  Transmission Date: 20180711
  Serious: No
  Sender: FDA-Public Use
  Company Number: US-PFIZER INC-2018045199

PATIENT
  Age: 60 Year
  Sex: Female
  Weight: 58.5 kg

DRUGS (3)
  1. DOCETAXEL. [Suspect]
     Active Substance: DOCETAXEL
     Indication: BREAST CANCER METASTATIC
     Dosage: MONTHLY (CYCLIC)
     Dates: start: 201603, end: 201702
  2. FENTANYL. [Concomitant]
     Active Substance: FENTANYL
  3. DOCETAXEL. [Suspect]
     Active Substance: DOCETAXEL
     Indication: BREAST CANCER METASTATIC
     Dosage: MONTHLY (CYCLIC)
     Dates: start: 201603, end: 201702

REACTIONS (2)
  - Madarosis [Recovered/Resolved]
  - Alopecia [Recovered/Resolved]

NARRATIVE: CASE EVENT DATE: 201605
